FAERS Safety Report 20506974 (Version 9)
Quarter: 2023Q1

REPORT INFORMATION
  Report Type: Spontaneous
  Country: IN (occurrence: IN)
  Receive Date: 20220223
  Receipt Date: 20230201
  Transmission Date: 20230418
  Serious: Yes (Other)
  Sender: FDA-Public Use
  Company Number: IN-PFIZER INC-2021545587

PATIENT
  Age: 41 Year
  Sex: Female
  Weight: 51.3 kg

DRUGS (3)
  1. DACOMITINIB [Suspect]
     Active Substance: DACOMITINIB
     Dosage: 30 MG, 1X/DAY
     Route: 048
     Dates: start: 20210511
  2. MEGEETRON [Concomitant]
     Dosage: 160 MG, 2X/DAY
  3. ULTRACET [Concomitant]
     Active Substance: ACETAMINOPHEN\TRAMADOL HYDROCHLORIDE
     Indication: Pain
     Dosage: 1 DF, AS NEEDED

REACTIONS (23)
  - Carcinoembryonic antigen increased [Unknown]
  - Atelectasis [Unknown]
  - Acquired diaphragmatic eventration [Unknown]
  - Dyspnoea [Recovered/Resolved]
  - Rash [Unknown]
  - Diarrhoea [Unknown]
  - C-reactive protein increased [Unknown]
  - Paronychia [Unknown]
  - Upper-airway cough syndrome [Unknown]
  - Upper respiratory tract infection [Unknown]
  - Globulin abnormal [Unknown]
  - Haemoglobin decreased [Unknown]
  - Red blood cell count decreased [Unknown]
  - Blood pressure increased [Unknown]
  - Heart rate increased [Unknown]
  - Protein total abnormal [Unknown]
  - Pleural thickening [Unknown]
  - Aspartate aminotransferase increased [Unknown]
  - Blood alkaline phosphatase increased [Unknown]
  - Abscess limb [Unknown]
  - Cough [Not Recovered/Not Resolved]
  - Weight increased [Unknown]
  - Pancreatic calcification [Unknown]

NARRATIVE: CASE EVENT DATE: 20210629
